FAERS Safety Report 5149345-0 (Version None)
Quarter: 2006Q4

REPORT INFORMATION
  Report Type: 
  Country: None (occurrence: None)
  Receive Date: 20061113
  Receipt Date: 20051114
  Transmission Date: 20070319
  Serious: No
  Sender: FDA-Public Use
  Company Number: US-GLAXOSMITHKLINE-A0582191A

PATIENT
  Age: 74 Year
  Sex: Female

DRUGS (3)
  1. COREG [Suspect]
     Indication: HYPERTENSION
     Route: 048
  2. PRILOSEC [Concomitant]
  3. LIPITOR [Concomitant]

REACTIONS (1)
  - ABDOMINAL PAIN UPPER [None]
